FAERS Safety Report 9276290 (Version 2)
Quarter: 2013Q1

REPORT INFORMATION
  Report Type: Spontaneous
  Country: US (occurrence: None)
  Receive Date: 20121012
  Receipt Date: 20121023
  Transmission Date: 20140127
  Serious: Yes (Hospitalization)
  Sender: FDA-Public Use
  Company Number: 2012AP003310

PATIENT
  Age: 47 Year
  Sex: Male

DRUGS (1)
  1. TRAMADOL HYDROCHLORIDE TABLETS [Suspect]
     Indication: INTENTIONAL OVERDOSE

REACTIONS (11)
  - Unresponsive to stimuli [None]
  - Hypoventilation [None]
  - Mental status changes [None]
  - Troponin I increased [None]
  - Brugada syndrome [None]
  - Intentional overdose [None]
  - Sinus tachycardia [None]
  - Blood pressure systolic increased [None]
  - Coronary artery disease [None]
  - Electrocardiogram ST segment [None]
  - Electrocardiogram repolarisation abnormality [None]
